FAERS Safety Report 4674964-5 (Version None)
Quarter: 2005Q2

REPORT INFORMATION
  Report Type: 
  Country: None (occurrence: None)
  Receive Date: 20050525
  Receipt Date: 20050511
  Transmission Date: 20051028
  Serious: Yes (Hospitalization)
  Sender: FDA-Public Use
  Company Number: 214469

PATIENT
  Age: 82 Year
  Sex: Male

DRUGS (4)
  1. AVASTIN [Suspect]
     Indication: COLORECTAL CANCER METASTATIC
     Dosage: Q2W
     Dates: start: 20041001
  2. ANTIBIOTIC (ANTIBIOTICS NOS) [Suspect]
     Indication: DIARRHOEA
  3. FLUOROURACIL [Concomitant]
  4. LEUCOVORIN CALCIUM [Concomitant]

REACTIONS (6)
  - BRAIN DAMAGE [None]
  - BRAIN NEOPLASM [None]
  - CONVULSION [None]
  - DIARRHOEA [None]
  - PYREXIA [None]
  - SCAR [None]
